FAERS Safety Report 12967792 (Version 1)
Quarter: 2016Q4

REPORT INFORMATION
  Report Type: Spontaneous
  Country: US (occurrence: US)
  Receive Date: 20161123
  Receipt Date: 20161123
  Transmission Date: 20170207
  Serious: No
  Sender: FDA-Public Use
  Company Number: US-PFIZER INC-2016499023

PATIENT
  Age: 73 Year
  Sex: Male

DRUGS (22)
  1. MYRBETRIQ [Concomitant]
     Active Substance: MIRABEGRON
     Dosage: 25 MG, DAILY
     Route: 048
  2. INDERAL [Concomitant]
     Active Substance: PROPRANOLOL HYDROCHLORIDE
     Dosage: 60 MG, 2X/DAY
     Route: 048
  3. ULTRAM [Concomitant]
     Active Substance: TRAMADOL HYDROCHLORIDE
     Indication: PAIN
     Dosage: 50 MG, AS NEEDED (TAKE 1 TABLET BY (50 MG) BY MOUTH EVERY 8 HOURS AS NEEDED FOR PAIN)
     Route: 048
  4. KENALOG [Concomitant]
     Active Substance: TRIAMCINOLONE ACETONIDE
     Indication: EXFOLIATIVE RASH
     Dosage: UNK UNK, AS NEEDED (APPLY BID X 5-7 DAYS TO AREAS OF RASH; RUB INTO SKIN WELL. USE PRN ONLY.)
  5. FLOMAX [Concomitant]
     Active Substance: TAMSULOSIN HYDROCHLORIDE
     Dosage: 0.4 MG, 2X/DAY
     Route: 048
  6. PROSCAR [Concomitant]
     Active Substance: FINASTERIDE
     Dosage: 5 MG, DAILY
     Route: 048
  7. XELODA [Concomitant]
     Active Substance: CAPECITABINE
     Dosage: 200 MG, CYCLIC (TAKE 2000 MG (4 TABLETS) TWICE DAILY. TAKE 14 DAYS THEN STOP FOR 7 DAYS AND REPEAT)
  8. IMODIUM A-D [Concomitant]
     Active Substance: LOPERAMIDE HYDROCHLORIDE
     Indication: DIARRHOEA
     Dosage: 1 DF, AS NEEDED (TAKE 1 TABLET BY MOUTH 2 TIMES DAILY AS NEEDED FOR OTHER (SEE COMMENT) (LOOSE STOOL
     Route: 048
  9. NEURONTIN [Concomitant]
     Active Substance: GABAPENTIN
     Dosage: 600 MG, 3X/DAY (300MG, 2 CAPSULE (600 MG) )
     Route: 048
  10. VITAMIN D2 [Concomitant]
     Active Substance: ERGOCALCIFEROL
     Dosage: 50000 IU, WEEKLY EVERY 7 DAYS
     Route: 048
  11. VITAMIN B12 [Concomitant]
     Active Substance: CYANOCOBALAMIN
     Dosage: 100 UG, DAILY
     Route: 048
  12. PRILOSEC [Concomitant]
     Active Substance: OMEPRAZOLE MAGNESIUM
     Dosage: 20 MG, DAILY
     Route: 048
  13. LYRICA [Suspect]
     Active Substance: PREGABALIN
     Indication: COLON CANCER
     Dosage: 50 MG, 3X/DAY (TAKE 1 CAP BY MOUTH Q 8 HOURS)
     Route: 048
     Dates: start: 20161104
  14. MYSOLINE [Concomitant]
     Active Substance: PRIMIDONE
     Dosage: 50 MG, 3X/DAY (EVERY 8 HOURS)
     Route: 048
  15. REQUIP [Concomitant]
     Active Substance: ROPINIROLE HYDROCHLORIDE
     Dosage: 1 MG, 2X/DAY
     Route: 048
  16. EFFEXOR [Concomitant]
     Active Substance: VENLAFAXINE HYDROCHLORIDE
     Dosage: 37.5 MG, 2X/DAY
     Route: 048
  17. STIOLTO RESPIMAT [Concomitant]
     Active Substance: OLODATEROL HYDROCHLORIDE\TIOTROPIUM BROMIDE MONOHYDRATE
     Dosage: [OLODATEROL HYDROCHLORIDE 2.5 MCG]/ [TIOTROPIUM BROMIDE 2.5 MCG] INHALE TWO PUFFS DAILY
     Route: 055
  18. COMPAZINE [Concomitant]
     Active Substance: PROCHLORPERAZINE MALEATE
     Indication: VOMITING
  19. DITROPAN [Concomitant]
     Active Substance: OXYBUTYNIN CHLORIDE
     Dosage: 15 MG, DAILY
     Route: 048
  20. COMPAZINE [Concomitant]
     Active Substance: PROCHLORPERAZINE MALEATE
     Indication: NAUSEA
     Dosage: 10 MG, AS NEEDED (TAKE 10 MG BY MOUTH EVERY 6 HOURS AS NEEDED FOR NAUSEA/EMESIS)
     Route: 048
  21. VALIUM [Concomitant]
     Active Substance: DIAZEPAM
     Indication: ANXIETY
     Dosage: 5 MG, AS NEEDED (TAKE 5 MG BY MOUTH EVERY 6 HOURS AS NEEDED FOR ANXIETY)
     Route: 048
  22. NORCO [Concomitant]
     Active Substance: ACETAMINOPHEN\HYDROCODONE BITARTRATE
     Indication: PAIN
     Dosage: 1 DF, AS NEEDED [HYDROCODONE: 5 MG]/ [ACETAMINOPHEN: 325 MG] TAKE 1 TABLET BY MOUTH EVERY 4 HOURS)
     Route: 048

REACTIONS (1)
  - Product use issue [Unknown]

NARRATIVE: CASE EVENT DATE: 20161104
